FAERS Safety Report 24832743 (Version 1)
Quarter: 2025Q1

REPORT INFORMATION
  Report Type: Spontaneous
  Country: US (occurrence: US)
  Receive Date: 20250110
  Receipt Date: 20250110
  Transmission Date: 20250408
  Serious: No
  Sender: INTRABIO INC.
  Company Number: US-IBO-202400094

PATIENT
  Age: 1 Year
  Sex: Male
  Weight: 11 kg

DRUGS (1)
  1. AQNEURSA [Suspect]
     Active Substance: ACETYLLEUCINE, L-
     Dosage: AQNEURSA 1 GRAM SACHET??TAKE 1 GRAM BY MOUTH ONCE DAILY
     Route: 048

REACTIONS (2)
  - Off label use [Unknown]
  - Off label use [Unknown]
